FAERS Safety Report 7280666-1 (Version None)
Quarter: 2011Q1

REPORT INFORMATION
  Report Type: 
  Country: None (occurrence: None)
  Receive Date: 20110208
  Receipt Date: 20110201
  Transmission Date: 20110831
  Serious: Yes (Hospitalization)
  Sender: FDA-Public Use
  Company Number: A0875837A

PATIENT
  Age: 73 Year
  Sex: Male

DRUGS (1)
  1. AVANDIA [Suspect]
     Indication: DIABETES MELLITUS
     Dosage: 4MG PER DAY
     Route: 048
     Dates: start: 20000713, end: 20071003

REACTIONS (10)
  - CARDIAC FAILURE CONGESTIVE [None]
  - RENAL ARTERY STENT PLACEMENT [None]
  - CAROTID ENDARTERECTOMY [None]
  - CAROTID ARTERY DISEASE [None]
  - PERIPHERAL VASCULAR DISORDER [None]
  - MYOCARDIAL INFARCTION [None]
  - RENAL ARTERY STENOSIS [None]
  - RENAL FAILURE CHRONIC [None]
  - CORONARY ARTERIAL STENT INSERTION [None]
  - CORONARY ANGIOPLASTY [None]
